FAERS Safety Report 4335365-2 (Version None)
Quarter: 2004Q2

REPORT INFORMATION
  Report Type: 
  Country: None (occurrence: None)
  Receive Date: 20040406
  Receipt Date: 20040322
  Transmission Date: 20050107
  Serious: Yes (Other)
  Sender: FDA-Public Use
  Company Number: 8005061

PATIENT
  Age: 53 Year
  Sex: Female
  Weight: 63.6 kg

DRUGS (9)
  1. KEPPRA [Suspect]
     Indication: CONVULSION
     Dosage: 500 MG 2/D PO
     Route: 048
     Dates: start: 20030314, end: 20030601
  2. KEPPRA [Suspect]
     Indication: CONVULSION
     Dosage: 250 MG 2/D PO
     Route: 048
     Dates: start: 20030601, end: 20031201
  3. KEPPRA [Suspect]
     Indication: CONVULSION
     Dosage: 1500 MG/D PO
     Route: 048
     Dates: start: 20031201, end: 20031201
  4. KEPPRA [Suspect]
     Indication: CONVULSION
     Dosage: 250 MG 2/D PO
     Route: 048
     Dates: start: 20031201, end: 20040215
  5. FOLIC ACID [Concomitant]
  6. ESTRADIOL [Concomitant]
  7. PROGESTERONE [Concomitant]
  8. FLEXERIL [Concomitant]
  9. CALCIUM [Concomitant]

REACTIONS (24)
  - ACCIDENTAL OVERDOSE [None]
  - ANHEDONIA [None]
  - ASTHENIA [None]
  - AURA [None]
  - COMPLEX PARTIAL SEIZURES [None]
  - CONVULSION [None]
  - CRYING [None]
  - DEPRESSION [None]
  - DISCOMFORT [None]
  - DISTURBANCE IN ATTENTION [None]
  - DRY MOUTH [None]
  - EMOTIONAL DISORDER [None]
  - FATIGUE [None]
  - HYPERACUSIS [None]
  - HYPOAESTHESIA [None]
  - LIP DRY [None]
  - MUSCLE TIGHTNESS [None]
  - MYALGIA [None]
  - NAIL DISORDER [None]
  - NAUSEA [None]
  - NIGHTMARE [None]
  - STRESS SYMPTOMS [None]
  - SUICIDAL IDEATION [None]
  - THIRST [None]
